FAERS Safety Report 24794030 (Version 1)
Quarter: 2024Q4

REPORT INFORMATION
  Report Type: Spontaneous
  Country: US (occurrence: US)
  Receive Date: 20241231
  Receipt Date: 20241231
  Transmission Date: 20250115
  Serious: Yes (Other)
  Sender: MYLAN
  Company Number: US-MYLANLABS-2024M1117163

PATIENT
  Age: 66 Year
  Sex: Female
  Weight: 131.09 kg

DRUGS (2)
  1. LATANOPROST [Suspect]
     Active Substance: LATANOPROST
     Indication: Glaucoma
     Dosage: 1 GTT DROPS, HS (IN EACH EYE, EVERY NIGHT AT BEDTIME)
     Route: 047
  2. LATANOPROST [Suspect]
     Active Substance: LATANOPROST
     Dosage: 2 GTT DROPS, HS (IN EACH EYE, EVERY NIGHT AT BEDTIME)
     Route: 047

REACTIONS (3)
  - Glaucoma [Unknown]
  - Off label use [Unknown]
  - Product packaging quantity issue [Unknown]

NARRATIVE: CASE EVENT DATE: 20241220
